FAERS Safety Report 7375668-0 (Version None)
Quarter: 2011Q1

REPORT INFORMATION
  Report Type: 
  Country: None (occurrence: None)
  Receive Date: 20110325
  Receipt Date: 20110315
  Transmission Date: 20110831
  Serious: Yes (Life-Threatening, Hospitalization)
  Sender: FDA-Public Use
  Company Number: FR-BAXTER-2011BH006893

PATIENT
  Age: 54 Year
  Sex: Female

DRUGS (12)
  1. VALACICLOVIR [Concomitant]
     Indication: PROPHYLAXIS
     Route: 048
     Dates: start: 20100401
  2. AMOXICILLIN [Concomitant]
     Indication: INFECTION PROPHYLAXIS
     Route: 048
     Dates: start: 20101021
  3. CYCLOSPORINE [Suspect]
     Indication: PROPHYLAXIS
     Route: 042
     Dates: start: 20100824, end: 20100901
  4. PENTAMIDINE ISETHIONATE [Concomitant]
     Indication: INFECTION PROPHYLAXIS
     Route: 055
     Dates: start: 20100501
  5. XANAX [Concomitant]
     Indication: PRODUCT USED FOR UNKNOWN INDICATION
     Route: 048
     Dates: start: 20100401
  6. MOPRAL [Concomitant]
     Indication: PRODUCT USED FOR UNKNOWN INDICATION
     Route: 048
     Dates: start: 20100401
  7. NEORAL [Suspect]
     Indication: PROPHYLAXIS
     Route: 048
     Dates: start: 20100901, end: 20101124
  8. TRIFLUCAN [Concomitant]
     Indication: PROPHYLAXIS
     Route: 048
     Dates: start: 20100801
  9. MAGNE-B6 [Concomitant]
     Indication: PRODUCT USED FOR UNKNOWN INDICATION
     Route: 048
     Dates: start: 20100801
  10. AUGMENTIN '125' [Concomitant]
     Indication: PRODUCT USED FOR UNKNOWN INDICATION
     Route: 048
     Dates: start: 20100801, end: 20100921
  11. CYCLOPHOSPHAMIDE [Suspect]
     Indication: PRODUCT USED FOR UNKNOWN INDICATION
     Route: 042
     Dates: start: 20100801, end: 20100801
  12. METHOTREXATE GENERIC [Suspect]
     Indication: CHEMOTHERAPY
     Route: 065
     Dates: start: 20100301, end: 20100801

REACTIONS (9)
  - APHASIA [None]
  - BALANCE DISORDER [None]
  - PAIN [None]
  - ENCEPHALOPATHY [None]
  - VISUAL IMPAIRMENT [None]
  - DEPRESSED LEVEL OF CONSCIOUSNESS [None]
  - SENSORY DISTURBANCE [None]
  - DISORIENTATION [None]
  - DECREASED APPETITE [None]
